FAERS Safety Report 12495023 (Version 1)
Quarter: 2016Q2

REPORT INFORMATION
  Report Type: Report from Study
  Country: JP (occurrence: JP)
  Receive Date: 20160624
  Receipt Date: 20160624
  Transmission Date: 20160815
  Serious: Yes (Disabling)
  Sender: FDA-Public Use
  Company Number: JP-BRISTOL-MYERS SQUIBB COMPANY-BMS-2016-050816

PATIENT
  Age: 65 Year
  Sex: Male

DRUGS (5)
  1. NIVOLUMAB [Suspect]
     Active Substance: NIVOLUMAB
     Dosage: 260 MG, Q2WK
     Route: 041
     Dates: start: 20160406, end: 20160406
  2. NIVOLUMAB [Suspect]
     Active Substance: NIVOLUMAB
     Dosage: 260 MG, Q2WK
     Route: 041
     Dates: start: 20160309, end: 20160309
  3. NIVOLUMAB [Suspect]
     Active Substance: NIVOLUMAB
     Indication: NON-SMALL CELL LUNG CANCER
     Dosage: 260 MG, Q2WK
     Route: 041
     Dates: start: 20160224, end: 20160224
  4. NIVOLUMAB [Suspect]
     Active Substance: NIVOLUMAB
     Dosage: 260 MG, Q2WK
     Route: 041
     Dates: start: 20160323, end: 20160323
  5. NIVOLUMAB [Suspect]
     Active Substance: NIVOLUMAB
     Dosage: 260 MG, Q2WK
     Route: 041
     Dates: start: 20160420, end: 20160420

REACTIONS (4)
  - Hypoaesthesia [Recovered/Resolved]
  - Arthralgia [Recovered/Resolved]
  - Oedema [Recovering/Resolving]
  - Pain in extremity [Recovered/Resolved]

NARRATIVE: CASE EVENT DATE: 20160323
